FAERS Safety Report 9453276 (Version 1)
Quarter: 2013Q3

REPORT INFORMATION
  Report Type: Spontaneous
  Country: ZA (occurrence: ZA)
  Receive Date: 20130812
  Receipt Date: 20130812
  Transmission Date: 20140515
  Serious: Yes (Hospitalization, Other)
  Sender: FDA-Public Use
  Company Number: ZA-009507513-1308ZAF004070

PATIENT
  Sex: Male

DRUGS (1)
  1. CANCIDAS 50MG [Suspect]
     Indication: INFECTIOUS DISEASE CARRIER
     Dosage: UNKNOWN
     Route: 042

REACTIONS (2)
  - Urticaria [Unknown]
  - Hypersensitivity [Unknown]
